FAERS Safety Report 7954266-1 (Version None)
Quarter: 2011Q4

REPORT INFORMATION
  Report Type: 
  Country: None (occurrence: None)
  Receive Date: 20111202
  Receipt Date: 20111122
  Transmission Date: 20120403
  Serious: Yes (Other)
  Sender: FDA-Public Use
  Company Number: US-BAYER-2011-093988

PATIENT
  Age: 31 Year
  Sex: Female

DRUGS (7)
  1. NAPROXEN [Concomitant]
     Dosage: UNK
     Dates: start: 20091009
  2. YAZ [Suspect]
     Indication: ACNE
     Dosage: UNK
     Dates: start: 20081001, end: 20091101
  3. MULTI-VITAMINS [Concomitant]
     Indication: MEDICAL DIET
     Dosage: UNK
     Dates: start: 20040101
  4. VITAMIN B-12 [Concomitant]
     Indication: MEDICAL DIET
     Dosage: UNK
     Dates: start: 20040101
  5. PRISTIQ [Concomitant]
     Dosage: UNK
     Dates: start: 20091009
  6. TREXIMET 85/500 [Concomitant]
     Indication: MIGRAINE
     Dosage: UNK
     Dates: start: 20091009
  7. IBUPROFEN (ADVIL) [Concomitant]
     Dosage: UNK
     Dates: start: 20091009

REACTIONS (4)
  - INJURY [None]
  - PAIN [None]
  - GALLBLADDER CHOLESTEROLOSIS [None]
  - GALLBLADDER DISORDER [None]
